FAERS Safety Report 5989484-5 (Version None)
Quarter: 2008Q4

REPORT INFORMATION
  Report Type: 
  Country: None (occurrence: None)
  Receive Date: 20081208
  Receipt Date: 20081126
  Transmission Date: 20090506
  Serious: Yes (Death, Hospitalization, Other)
  Sender: FDA-Public Use
  Company Number: 037702

PATIENT
  Age: 52 Year
  Sex: Male

DRUGS (2)
  1. ATENOLOL [Suspect]
     Dosage: ORAL
     Route: 048
  2. VERAPAMIL [Suspect]
     Dosage: ORAL
     Route: 048

REACTIONS (7)
  - ANURIA [None]
  - BRADYCARDIA [None]
  - GASTROINTESTINAL SOUNDS ABNORMAL [None]
  - HYPOTENSION [None]
  - OVERDOSE [None]
  - PERIPHERAL COLDNESS [None]
  - SHOCK [None]
